FAERS Safety Report 8571833 (Version 2)
Quarter: 2014Q2

REPORT INFORMATION
  Report Type: Spontaneous
  Country: US (occurrence: US)
  Receive Date: 20120521
  Receipt Date: 20140512
  Transmission Date: 20141212
  Serious: No
  Sender: FDA-Public Use
  Company Number: US-ASTRAZENECA-2010SE39200

PATIENT
  Age: 70 Year
  Sex: Female
  Weight: 68 kg

DRUGS (6)
  1. SEROQUEL [Suspect]
     Indication: PANIC ATTACK
     Route: 048
     Dates: start: 2002
  2. QUETIAPINE FUMARATE ( ATOPEZ ) [Suspect]
     Route: 065
  3. KLONOPIN [Concomitant]
  4. PREMARIN [Concomitant]
  5. LEVOTHYROXINE [Concomitant]
  6. GOLYTELY SOLUTION [Concomitant]

REACTIONS (19)
  - Pruritus [Unknown]
  - Malaise [Unknown]
  - Dysstasia [Unknown]
  - Skin burning sensation [Unknown]
  - Paraesthesia [Unknown]
  - Rash [Unknown]
  - Anxiety [Not Recovered/Not Resolved]
  - Adverse drug reaction [Unknown]
  - Nervousness [Not Recovered/Not Resolved]
  - Pruritus generalised [Not Recovered/Not Resolved]
  - Thinking abnormal [Not Recovered/Not Resolved]
  - Insomnia [Not Recovered/Not Resolved]
  - Feeling abnormal [Unknown]
  - Tremor [Not Recovered/Not Resolved]
  - Irritability [Unknown]
  - Constipation [Unknown]
  - Off label use [Unknown]
  - Drug ineffective [Unknown]
  - Drug dose omission [Not Recovered/Not Resolved]
